FAERS Safety Report 6362571-8 (Version None)
Quarter: 2009Q3

REPORT INFORMATION
  Report Type: 
  Country: None (occurrence: None)
  Receive Date: 20090918
  Receipt Date: 20090603
  Transmission Date: 20100115
  Serious: No
  Sender: FDA-Public Use
  Company Number: US-ABBOTT-09P-163-0577809-00

PATIENT
  Sex: Male
  Weight: 106.69 kg

DRUGS (7)
  1. HUMIRA [Suspect]
     Indication: ANKYLOSING SPONDYLITIS
     Route: 058
     Dates: start: 20090301
  2. HUMIRA [Suspect]
     Indication: SPINAL FUSION SURGERY
  3. GLUCOSAMINE [Suspect]
     Indication: ANKYLOSING SPONDYLITIS
     Dosage: TWO TABLETS IN AM, TWO TABLETS IN PM
     Dates: start: 20090513, end: 20090601
  4. TYLENOL (CAPLET) [Concomitant]
     Indication: ANKYLOSING SPONDYLITIS
     Dates: start: 20080101
  5. OXYCONTIN [Concomitant]
     Indication: ANKYLOSING SPONDYLITIS
     Dosage: IN MORNING AS NEEDED
     Dates: start: 20080101
  6. NEXIUM [Concomitant]
     Indication: GASTROOESOPHAGEAL REFLUX DISEASE
  7. ASACOL [Concomitant]
     Indication: COLITIS ULCERATIVE
     Dosage: DAILY

REACTIONS (1)
  - RASH [None]
